FAERS Safety Report 15548335 (Version 2)
Quarter: 2019Q2

REPORT INFORMATION
  Report Type: Spontaneous
  Country: BR (occurrence: BR)
  Receive Date: 20181024
  Receipt Date: 20190607
  Transmission Date: 20190711
  Serious: Yes (Other)
  Sender: FDA-Public Use
  Company Number: BR-BAXTER-2018BAX026289

PATIENT

DRUGS (7)
  1. FAULDVINCRI [Suspect]
     Active Substance: VINCRISTINE SULFATE
     Indication: LEUKAEMIA
     Dosage: DILUTION: VINCRISTINE + SODIUM CHLORIDE
     Route: 040
     Dates: start: 20180927
  2. GENUXAL [Suspect]
     Active Substance: CYCLOPHOSPHAMIDE
     Indication: LEUKAEMIA
     Dosage: DILUTION: CYCLOPHOSPHAMIDE + SODIUM CHLORIDE
     Route: 042
     Dates: start: 20180927, end: 20180927
  3. INTERFERON ALFA NOS [Suspect]
     Active Substance: INTERFERON ALFA-2A OR INTERFERON ALFA-2B
     Indication: LEUKAEMIA
     Dosage: DILUTION: ALPHA INTERFERON + WATER FOR INJECTION, VIA BOLUS
     Route: 058
     Dates: start: 20180927
  4. FAULDOXO [Suspect]
     Active Substance: DOXORUBICIN HYDROCHLORIDE
     Indication: LEUKAEMIA
     Dosage: DILUTION: DOXORUBICIN + GLYCOSATED SERUM
     Route: 042
     Dates: start: 20180927, end: 20180927
  5. STERILE WATER [Suspect]
     Active Substance: WATER
     Indication: MEDICATION DILUTION
     Dosage: DILUTION: ALPHA INTERFERON + WATER FOR INJECTION, VIA BOLUS
     Route: 058
     Dates: start: 20180927
  6. SODIUM CHLORIDE. [Suspect]
     Active Substance: SODIUM CHLORIDE
     Indication: MEDICATION DILUTION
     Dosage: DILUTION: CYCLOPHOSPHAMIDE + SODIUM CHLORIDE
     Route: 042
     Dates: start: 20180927, end: 20180927
  7. SODIUM CHLORIDE. [Suspect]
     Active Substance: SODIUM CHLORIDE
     Dosage: DILUTION: VINCRISTINE + SODIUM CHLORIDE
     Route: 040
     Dates: start: 20180927

REACTIONS (3)
  - Neutropenia [Recovered/Resolved]
  - Anaemia [Recovered/Resolved]
  - Thrombocytopenia [Recovered/Resolved]

NARRATIVE: CASE EVENT DATE: 20181008
